FAERS Safety Report 9197042 (Version 1)
Quarter: 2013Q1

REPORT INFORMATION
  Report Type: Spontaneous
  Country: US (occurrence: US)
  Receive Date: 20130328
  Receipt Date: 20130328
  Transmission Date: 20140127
  Serious: No
  Sender: FDA-Public Use
  Company Number: US-BAYER-2013-038842

PATIENT
  Age: 63 Year
  Sex: Male
  Weight: 104.31 kg

DRUGS (3)
  1. ALEVE [Suspect]
     Indication: ARTHRITIS
     Dosage: 2 DF, PRN
     Route: 048
     Dates: start: 2011, end: 20130319
  2. ALEVE [Suspect]
     Indication: MUSCLE STRAIN
     Dosage: 3 DF, ONCE
     Route: 048
     Dates: start: 20130318, end: 20130318
  3. ANTIHYPERTENSIVES [Concomitant]

REACTIONS (2)
  - Drug ineffective [None]
  - Inappropriate schedule of drug administration [None]
